FAERS Safety Report 6069232-3 (Version None)
Quarter: 2009Q1

REPORT INFORMATION
  Report Type: 
  Country: None (occurrence: None)
  Receive Date: 20090206
  Receipt Date: 20090127
  Transmission Date: 20090719
  Serious: Yes (Other)
  Sender: FDA-Public Use
  Company Number: PHHY2009GB03026

PATIENT
  Sex: Female
  Weight: 70 kg

DRUGS (1)
  1. TEGRETOL [Suspect]

REACTIONS (3)
  - EYE DISORDER [None]
  - HYPERCHOLESTEROLAEMIA [None]
  - PROTEIN TOTAL [None]
